FAERS Safety Report 13282240 (Version 1)
Quarter: 2017Q1

REPORT INFORMATION
  Report Type: Spontaneous
  Country: US (occurrence: US)
  Receive Date: 20170228
  Receipt Date: 20170228
  Transmission Date: 20170428
  Serious: Yes (Death)
  Sender: FDA-Public Use
  Company Number: None

PATIENT
  Age: 82 Year
  Sex: Male

DRUGS (9)
  1. MILK OF MAG [Concomitant]
  2. ENEMA READY [Concomitant]
  3. OXCOD/APAP [Concomitant]
  4. OPDIVO [Suspect]
     Active Substance: NIVOLUMAB
     Indication: SKIN CANCER
     Route: 042
     Dates: start: 20161213, end: 201702
  5. MORPHINE [Concomitant]
     Active Substance: MORPHINE
  6. BISAC-EVAC [Concomitant]
     Active Substance: BISACODYL
  7. HALOPERIDOL. [Concomitant]
     Active Substance: HALOPERIDOL
  8. LORAZEPAM. [Concomitant]
     Active Substance: LORAZEPAM
  9. SENNA [Concomitant]
     Active Substance: SENNA LEAF\SENNOSIDES\SENNOSIDES A AND B

REACTIONS (1)
  - Disease progression [None]

NARRATIVE: CASE EVENT DATE: 20170225
